FAERS Safety Report 6973855-4 (Version None)
Quarter: 2010Q3

REPORT INFORMATION
  Report Type: 
  Country: None (occurrence: None)
  Receive Date: 20100909
  Receipt Date: 20100901
  Transmission Date: 20110219
  Serious: Yes (Hospitalization)
  Sender: FDA-Public Use
  Company Number: B0664522A

PATIENT
  Age: 52 Year
  Sex: Male

DRUGS (14)
  1. PAXIL [Suspect]
     Indication: BIPOLAR DISORDER
     Route: 048
     Dates: start: 20010315, end: 20071114
  2. SEPAZON [Concomitant]
     Route: 048
     Dates: start: 19950508
  3. CONSTAN [Concomitant]
     Route: 048
     Dates: start: 19950508
  4. AMITRIPTYLINE HCL [Concomitant]
     Indication: BIPOLAR DISORDER
     Route: 065
     Dates: start: 19980901, end: 19981101
  5. DOGMATYL [Concomitant]
     Indication: BIPOLAR DISORDER
     Route: 048
     Dates: start: 19980901
  6. LUVOX [Concomitant]
     Route: 048
  7. LITHIUM CARBONATE [Concomitant]
     Route: 048
     Dates: start: 19990101
  8. HALOPERIDOL [Concomitant]
     Route: 048
     Dates: start: 19990101
  9. TOLEDOMIN [Concomitant]
     Route: 048
     Dates: start: 20010201
  10. LODOPIN [Concomitant]
     Route: 048
  11. RISPERDAL [Concomitant]
     Dosage: 1MG PER DAY
     Route: 048
  12. LEVOTOMIN [Concomitant]
     Route: 065
  13. TASMOLIN [Concomitant]
     Dosage: 1MG PER DAY
     Route: 048
     Dates: start: 20071112
  14. UNKNOWN DRUG [Concomitant]
     Dosage: 10MG PER DAY
     Route: 048
     Dates: start: 20071112

REACTIONS (12)
  - ABULIA [None]
  - ANXIETY [None]
  - APATHY [None]
  - BLOOD GLUCOSE INCREASED [None]
  - DELUSION [None]
  - HYPERPHAGIA [None]
  - HYPERSOMNIA [None]
  - ILL-DEFINED DISORDER [None]
  - INSOMNIA [None]
  - MANIA [None]
  - MEMORY IMPAIRMENT [None]
  - OBSESSIVE-COMPULSIVE DISORDER [None]
